FAERS Safety Report 13456592 (Version 1)
Quarter: 2017Q2

REPORT INFORMATION
  Report Type: Spontaneous
  Country: US (occurrence: US)
  Receive Date: 20170418
  Receipt Date: 20170418
  Transmission Date: 20170830
  Serious: No
  Sender: FDA-Public Use
  Company Number: US-MATRIXX INITIATIVES, INC.-1065498

PATIENT
  Age: 46 Year
  Sex: Female
  Weight: 56.82 kg

DRUGS (3)
  1. ZICAM COLD REMEDY ULTRA CRYSTALS [Suspect]
     Active Substance: HOMEOPATHICS
     Indication: VIRAL UPPER RESPIRATORY TRACT INFECTION
     Route: 048
  2. MUCINEX [Concomitant]
     Active Substance: GUAIFENESIN
  3. PSEUDOEPHEDRINE HYDROCHLORIDE. [Concomitant]
     Active Substance: PSEUDOEPHEDRINE HYDROCHLORIDE

REACTIONS (2)
  - Glossitis [None]
  - Ageusia [None]
